FAERS Safety Report 24421170 (Version 1)
Quarter: 2024Q4

REPORT INFORMATION
  Report Type: Report from Study
  Country: CL (occurrence: CL)
  Receive Date: 20241010
  Receipt Date: 20241010
  Transmission Date: 20250115
  Serious: Yes (Life-Threatening, Hospitalization, Other)
  Sender: SANDOZ
  Company Number: CL-SANDOZ-SDZ2024CL085464

PATIENT
  Age: 2 Year
  Sex: Female

DRUGS (1)
  1. OMNITROPE [Suspect]
     Active Substance: SOMATROPIN
     Indication: Turner^s syndrome
     Dosage: 0.3 IU DAILY
     Route: 058
     Dates: start: 20240422

REACTIONS (1)
  - Stenotrophomonas infection [Unknown]

NARRATIVE: CASE EVENT DATE: 20240904
